FAERS Safety Report 25214355 (Version 1)
Quarter: 2025Q2

REPORT INFORMATION
  Report Type: Spontaneous
  Country: US (occurrence: None)
  Receive Date: 20250417
  Receipt Date: 20250417
  Transmission Date: 20250717
  Serious: Yes (Other)
  Sender: FDA-CTU
  Company Number: None

PATIENT
  Age: 71 Year
  Sex: Male
  Weight: 91.63 kg

DRUGS (12)
  1. FINASTERIDE [Suspect]
     Active Substance: FINASTERIDE
     Indication: Benign prostatic hyperplasia
     Dosage: FREQUENCY : DAILY;?
     Route: 048
     Dates: start: 20241019, end: 20250205
  2. Amlodipine - 5mg [Concomitant]
  3. Aspirin - 81 mg [Concomitant]
  4. Atorvastatin - 80mg [Concomitant]
  5. Folis Acid - 1 mg [Concomitant]
  6. Hydroxychloroquine - 200mg x 2 [Concomitant]
  7. Methotrexate - 2.5mg x 8 [Concomitant]
  8. Nasonex - 50mcg [Concomitant]
  9. Pantropozal - 40mg [Concomitant]
  10. Potassium Citrate - 1 0meq [Concomitant]
  11. Prednisone - 5 mg [Concomitant]
  12. Flomax - 0.4mg x2 [Concomitant]

REACTIONS (1)
  - Gastrointestinal hypomotility [None]

NARRATIVE: CASE EVENT DATE: 20241020
